FAERS Safety Report 5672748-2 (Version None)
Quarter: 2008Q1

REPORT INFORMATION
  Report Type: 
  Country: None (occurrence: None)
  Receive Date: 20080319
  Receipt Date: 20070412
  Transmission Date: 20080703
  Serious: No
  Sender: FDA-Public Use
  Company Number: US-KINGPHARMUSA00001-K200700473

PATIENT

DRUGS (9)
  1. ALTACE [Suspect]
     Indication: HYPERTENSION
     Dosage: 1.25 MG, QD
     Route: 048
     Dates: start: 20070301, end: 20070101
  2. ALTACE [Suspect]
     Dosage: 2.5 MG, QD
     Route: 048
     Dates: start: 20070101, end: 20070101
  3. ALTACE [Suspect]
     Dosage: 5 MG, QD
     Route: 048
     Dates: start: 20070101, end: 20070101
  4. ALTACE [Suspect]
     Dosage: 10 MG, QD
     Route: 048
     Dates: start: 20070409
  5. SYNTHROID [Concomitant]
     Indication: THYROID DISORDER
     Dosage: .575 UNK, QD
     Route: 048
  6. CLARITIN   /00917501/ [Concomitant]
     Indication: SINUS HEADACHE
     Dosage: UNK, SINGLE
     Dates: start: 20070410
  7. CALCIUM-MAGNESIUM WITH ZINC [Concomitant]
     Route: 048
     Dates: start: 20070410
  8. ADVIL  /00109201/ [Concomitant]
     Indication: HEADACHE
  9. TYLENOL ALLERGY SINUS /00446801/ [Concomitant]
     Indication: SINUS HEADACHE
     Dates: end: 20070101

REACTIONS (6)
  - ANXIETY [None]
  - DRUG INEFFECTIVE [None]
  - HEADACHE [None]
  - HEART RATE INCREASED [None]
  - NAUSEA [None]
  - PALPITATIONS [None]
